FAERS Safety Report 6643371-8 (Version None)
Quarter: 2010Q1

REPORT INFORMATION
  Report Type: 
  Country: None (occurrence: None)
  Receive Date: 20100319
  Receipt Date: 20100312
  Transmission Date: 20100710
  Serious: Yes (Hospitalization)
  Sender: FDA-Public Use
  Company Number: PHHO2010US02961

PATIENT
  Sex: Male
  Weight: 84.5 kg

DRUGS (6)
  1. CERTICAN [Suspect]
     Indication: LIVER TRANSPLANT
     Dosage: UNK
     Dates: start: 20091109, end: 20100219
  2. TACROLIMUS [Suspect]
     Indication: LIVER TRANSPLANT
     Dosage: UNK
     Dates: start: 20091109, end: 20100202
  3. TACROLIMUS [Suspect]
     Dosage: NO TREATMENT
     Dates: start: 20100203, end: 20100221
  4. TACROLIMUS [Suspect]
     Dosage: UNK
     Route: 048
  5. SOLU-MEDROL [Concomitant]
     Indication: TRANSPLANT REJECTION
     Dosage: UNK
     Dates: start: 20100219, end: 20100222
  6. INSULIN [Concomitant]

REACTIONS (2)
  - HEPATIC ENZYME INCREASED [None]
  - TRANSPLANT REJECTION [None]
